FAERS Safety Report 7584788-7 (Version None)
Quarter: 2011Q2

REPORT INFORMATION
  Report Type: 
  Country: None (occurrence: None)
  Receive Date: 20110630
  Receipt Date: 20110621
  Transmission Date: 20111010
  Serious: Yes (Other)
  Sender: FDA-Public Use
  Company Number: PHHY2011CA55707

PATIENT
  Sex: Female

DRUGS (1)
  1. GILENYA [Suspect]
     Indication: RELAPSING-REMITTING MULTIPLE SCLEROSIS
     Dosage: 0.5 MG, UNK
     Route: 048
     Dates: start: 20110620

REACTIONS (6)
  - HEART RATE DECREASED [None]
  - BALANCE DISORDER [None]
  - DIZZINESS [None]
  - ASTHENIA [None]
  - NAUSEA [None]
  - BLOOD PRESSURE DECREASED [None]
